FAERS Safety Report 9405614 (Version 2)
Quarter: 2013Q3

REPORT INFORMATION
  Report Type: Spontaneous
  Country: CN (occurrence: CN)
  Receive Date: 20130717
  Receipt Date: 20130802
  Transmission Date: 20140515
  Serious: Yes (Hospitalization, Other)
  Sender: FDA-Public Use
  Company Number: CN-009507513-1307CHN006508

PATIENT
  Age: 88 Year
  Sex: Male
  Weight: 56 kg

DRUGS (6)
  1. ZOCOR [Suspect]
     Dosage: UNK
     Route: 048
     Dates: end: 20120822
  2. ZOCOR [Suspect]
     Dosage: UNK
  3. ZOCOR [Suspect]
     Indication: HYPERLIPIDAEMIA
     Dosage: 20 MG, QD
     Route: 048
     Dates: start: 20120822, end: 20120823
  4. MEMANTINE [Concomitant]
     Indication: PARKINSON^S DISEASE
     Dosage: 5 MG, QD
     Route: 048
     Dates: start: 20120822
  5. GLUTATHIONE [Concomitant]
     Dosage: 600 MG, UNK
     Route: 042
  6. GLYCYRRHIZIN [Concomitant]
     Dosage: 800 MG, QD
     Route: 042

REACTIONS (4)
  - Chest pain [Unknown]
  - Chest discomfort [Unknown]
  - Alanine aminotransferase increased [Recovered/Resolved]
  - Aspartate aminotransferase increased [Recovered/Resolved]
